FAERS Safety Report 14553382 (Version 1)
Quarter: 2018Q1

REPORT INFORMATION
  Report Type: Spontaneous
  Country: US (occurrence: US)
  Receive Date: 20180220
  Receipt Date: 20180220
  Transmission Date: 20180509
  Serious: No
  Sender: FDA-Public Use
  Company Number: US-PERRIGO-17US024082

PATIENT
  Sex: Male
  Weight: 72.56 kg

DRUGS (1)
  1. KETOCONAZOLE. [Suspect]
     Active Substance: KETOCONAZOLE
     Indication: DRY SKIN
     Dosage: 1 TEASPOON, ONCE WEEKLY PRN
     Route: 061
     Dates: start: 2015, end: 201705

REACTIONS (3)
  - Alopecia [Not Recovered/Not Resolved]
  - Off label use [Recovered/Resolved]
  - Hair colour changes [Recovering/Resolving]

NARRATIVE: CASE EVENT DATE: 2015
